FAERS Safety Report 8362298-7 (Version None)
Quarter: 2012Q2

REPORT INFORMATION
  Report Type: 
  Country: None (occurrence: None)
  Receive Date: 20120515
  Receipt Date: 20120504
  Transmission Date: 20120825
  Serious: Yes (Hospitalization, Other)
  Sender: FDA-Public Use
  Company Number: US-ELI_LILLY_AND_COMPANY-US201204003290

PATIENT
  Sex: Female

DRUGS (6)
  1. FORTEO [Suspect]
     Indication: OSTEOPOROSIS
     Dosage: 20 UG, QD
     Route: 065
     Dates: end: 20120323
  2. PLAQUENIL [Concomitant]
  3. VASOTEC [Concomitant]
     Dosage: 10 MG, UNK
  4. DIURIL [Concomitant]
  5. PRILOSEC [Concomitant]
  6. PREDNISONE [Concomitant]
     Dosage: 4 MG, UNK

REACTIONS (2)
  - SUBARACHNOID HAEMORRHAGE [None]
  - UNRESPONSIVE TO STIMULI [None]
